FAERS Safety Report 6553930-9 (Version None)
Quarter: 2010Q1

REPORT INFORMATION
  Report Type: 
  Country: None (occurrence: None)
  Receive Date: 20100127
  Receipt Date: 20100122
  Transmission Date: 20100710
  Serious: Yes (Hospitalization)
  Sender: FDA-Public Use
  Company Number: JP-ROCHE-599216

PATIENT
  Sex: Female
  Weight: 59 kg

DRUGS (21)
  1. TOCILIZUMAB [Suspect]
     Indication: JUVENILE ARTHRITIS
     Route: 041
     Dates: start: 20080707, end: 20080707
  2. TOCILIZUMAB [Suspect]
     Route: 041
     Dates: start: 20080728, end: 20080811
  3. TOCILIZUMAB [Suspect]
     Route: 041
     Dates: start: 20080828, end: 20080918
  4. TOCILIZUMAB [Suspect]
     Route: 041
     Dates: start: 20081009, end: 20081009
  5. TOCILIZUMAB [Suspect]
     Route: 041
     Dates: start: 20081023, end: 20081023
  6. TOCILIZUMAB [Suspect]
     Route: 041
     Dates: start: 20081113, end: 20081225
  7. TOCILIZUMAB [Suspect]
     Route: 041
     Dates: start: 20090105, end: 20090105
  8. TOCILIZUMAB [Suspect]
     Route: 041
     Dates: start: 20090126, end: 20090126
  9. TOCILIZUMAB [Suspect]
     Route: 041
     Dates: start: 20090209, end: 20090209
  10. TOCILIZUMAB [Suspect]
     Route: 041
     Dates: start: 20090302, end: 20090302
  11. TOCILIZUMAB [Suspect]
     Route: 041
     Dates: start: 20090319
  12. IBRUPROFEN [Concomitant]
     Route: 048
     Dates: start: 20081023, end: 20081112
  13. PREDNISOLONE [Concomitant]
     Dosage: FORM: ORAL FORMULATION NOS
     Route: 048
     Dates: end: 20080604
  14. PREDNISOLONE [Concomitant]
     Route: 048
     Dates: start: 20080605, end: 20080810
  15. PREDNISOLONE [Concomitant]
     Route: 048
     Dates: start: 20080811, end: 20090628
  16. PREDNISOLONE [Concomitant]
     Route: 048
     Dates: start: 20090629
  17. FOLIAMIN [Concomitant]
     Dosage: FORM: ORAL FORMULATION (NOS)
     Route: 048
  18. METHOTREXATE [Concomitant]
     Route: 048
  19. BAYNAS [Concomitant]
     Route: 048
  20. CABAGIN-U [Concomitant]
     Route: 048
     Dates: start: 20080810
  21. CABAGIN-U [Concomitant]
     Route: 048
     Dates: start: 20090209

REACTIONS (2)
  - COMPLEX REGIONAL PAIN SYNDROME [None]
  - UPPER RESPIRATORY TRACT INFLAMMATION [None]
